FAERS Safety Report 8499483-X (Version None)
Quarter: 2012Q3

REPORT INFORMATION
  Report Type: 
  Country: None (occurrence: None)
  Receive Date: 20120710
  Receipt Date: 20120703
  Transmission Date: 20120928
  Serious: Yes (Other)
  Sender: FDA-Public Use
  Company Number: US-JNJFOC-20120701967

PATIENT
  Sex: Female
  Weight: 78.02 kg

DRUGS (1)
  1. SIMPONI [Suspect]
     Indication: RHEUMATOID ARTHRITIS
     Route: 058
     Dates: start: 20120115, end: 20120427

REACTIONS (2)
  - VISUAL IMPAIRMENT [None]
  - MIGRAINE [None]
